FAERS Safety Report 16987069 (Version 1)
Quarter: 2019Q4

REPORT INFORMATION
  Report Type: Spontaneous
  Country: FR (occurrence: FR)
  Receive Date: 20191102
  Receipt Date: 20191102
  Transmission Date: 20200122
  Serious: Yes (Hospitalization)
  Sender: FDA-Public Use
  Company Number: FR-TEVA-2019-FR-1130535

PATIENT
  Age: 69 Year
  Sex: Female
  Weight: 85 kg

DRUGS (14)
  1. OFLOXACINE MYLAN 200 MG, COMPRIME PELLICULE SECABLE [Suspect]
     Active Substance: OFLOXACIN
     Indication: DEVICE RELATED INFECTION
     Dosage: 3 DF
     Route: 048
     Dates: start: 20190816, end: 20190917
  2. STILNOX [Concomitant]
     Active Substance: ZOLPIDEM TARTRATE
  3. ALPRAZOLAM. [Concomitant]
     Active Substance: ALPRAZOLAM
     Route: 065
  4. KARDEGIC [Concomitant]
     Active Substance: ASPIRIN DL-LYSINE
     Route: 065
  5. ULTRA LEVURE [Concomitant]
     Active Substance: SACCHAROMYCES CEREVISIAE
     Route: 065
  6. LOPERAMIDE LYOC [Suspect]
     Active Substance: LOPERAMIDE HYDROCHLORIDE
     Indication: DIARRHOEA
     Dosage: 1 DF
     Route: 048
     Dates: start: 20190904, end: 20190905
  7. SMECTA [Suspect]
     Active Substance: MONTMORILLONITE
     Indication: DIARRHOEA
     Route: 048
     Dates: start: 20190903, end: 20190911
  8. PREGABALINE MYLAN 75 MG, GELULE [Suspect]
     Active Substance: PREGABALIN
     Indication: PRODUCT USED FOR UNKNOWN INDICATION
     Dosage: 2 DF
     Route: 048
     Dates: start: 20190730, end: 20190911
  9. BRINTELLIX [Concomitant]
     Active Substance: VORTIOXETINE HYDROBROMIDE
     Route: 065
  10. ZAVICEFTA [Suspect]
     Active Substance: AVIBACTAM SODIUM\CEFTAZIDIME
     Indication: DEVICE RELATED INFECTION
     Route: 042
     Dates: start: 20190817, end: 20190908
  11. LOVENOX [Concomitant]
     Active Substance: ENOXAPARIN SODIUM
  12. TYGACIL [Concomitant]
     Active Substance: TIGECYCLINE
  13. DOMPERIDONE ARROW 10 MG, COMPRIME PELLICULE [Suspect]
     Active Substance: DOMPERIDONE
     Indication: VOMITING
     Dosage: 1 DF
     Route: 048
     Dates: start: 20190904, end: 20190904
  14. NEBIVOLOL. [Concomitant]
     Active Substance: NEBIVOLOL

REACTIONS (2)
  - Erythema [Recovered/Resolved]
  - Pruritus [Recovered/Resolved]

NARRATIVE: CASE EVENT DATE: 20190908
